FAERS Safety Report 6920388-7 (Version None)
Quarter: 2010Q3

REPORT INFORMATION
  Report Type: 
  Country: None (occurrence: None)
  Receive Date: 20100812
  Receipt Date: 20100809
  Transmission Date: 20110219
  Serious: Yes (Hospitalization, Other)
  Sender: FDA-Public Use
  Company Number: US-ASTRAZENECA-2007UW25108

PATIENT
  Age: 19792 Day
  Sex: Female
  Weight: 74.8 kg

DRUGS (19)
  1. SEROQUEL [Suspect]
     Indication: DEPRESSION
     Dosage: 300-500 MG, 50-300 MG
     Route: 048
     Dates: start: 20060101, end: 20070601
  2. SEROQUEL [Suspect]
     Dosage: 50-500 MG
     Route: 048
  3. CLONIDINE [Concomitant]
  4. ALBUTEROL [Concomitant]
  5. FAMOTIDINE [Concomitant]
  6. DIPHENHYDRAMINE [Concomitant]
  7. METHYLPREDNISOLONE [Concomitant]
  8. HYDROCHLOROTHIAZIDE [Concomitant]
  9. NICOTINE [Concomitant]
  10. MAGNESIUM OXIDE [Concomitant]
  11. ATROVENT HFA INHALER [Concomitant]
  12. ADVAIR DISKUS 100/50 [Concomitant]
  13. NEXIUM [Concomitant]
  14. NORVASC [Concomitant]
  15. IBUPROFEN [Concomitant]
  16. GUAIFENEX DM [Concomitant]
  17. LORATADINE [Concomitant]
  18. GEODON [Concomitant]
     Dosage: 40-60 MG
  19. CYMBALTA [Concomitant]
     Dosage: 30-60 MG

REACTIONS (16)
  - ASTHMA [None]
  - BACK PAIN [None]
  - GASTRITIS [None]
  - GASTROOESOPHAGEAL REFLUX DISEASE [None]
  - HIATUS HERNIA [None]
  - HYPERGLYCAEMIA [None]
  - HYPERTENSION [None]
  - ILL-DEFINED DISORDER [None]
  - OEDEMA PERIPHERAL [None]
  - PAIN IN EXTREMITY [None]
  - PARONYCHIA [None]
  - POSTMENOPAUSAL HAEMORRHAGE [None]
  - PSYCHOTIC DISORDER [None]
  - SUICIDAL IDEATION [None]
  - TYPE 2 DIABETES MELLITUS [None]
  - URINARY TRACT INFECTION [None]
